FAERS Safety Report 5153351-X (Version None)
Quarter: 2006Q4

REPORT INFORMATION
  Report Type: 
  Country: None (occurrence: None)
  Receive Date: 20061117
  Receipt Date: 20061107
  Transmission Date: 20070319
  Serious: Yes (Hospitalization)
  Sender: FDA-Public Use
  Company Number: US-JNJFOC-20061102539

PATIENT
  Age: 27 Month
  Sex: Female

DRUGS (2)
  1. ACETAMINOPHEN [Suspect]
  2. ACETAMINOPHEN [Suspect]
     Indication: DRUG USE FOR UNKNOWN INDICATION

REACTIONS (4)
  - COMA [None]
  - METABOLIC ACIDOSIS [None]
  - OVERDOSE [None]
  - VOMITING [None]
